FAERS Safety Report 9177439 (Version 1)
Quarter: 2013Q1

REPORT INFORMATION
  Report Type: Spontaneous
  Country: US (occurrence: US)
  Receive Date: 20130321
  Receipt Date: 20130321
  Transmission Date: 20140127
  Serious: No
  Sender: FDA-Public Use
  Company Number: US-MYLANLABS-2012S1009376

PATIENT
  Age: 74 Year
  Sex: Female
  Weight: 72.58 kg

DRUGS (5)
  1. ALBUTEROL SULFATE [Suspect]
     Indication: PSEUDOMONAS BRONCHITIS
     Dosage: 1 TO 2 TIMES PER DAY
     Route: 055
     Dates: start: 20120208
  2. DIOVAN HCT [Concomitant]
     Indication: HYPERTENSION
     Dosage: HCTZ DOSE 12.5MG
     Route: 048
     Dates: start: 2001
  3. DOXYCYCLINE [Concomitant]
     Indication: PSEUDOMONAS BRONCHITIS
     Dosage: TAKES FOR 10 DAYS EVERY OTHER MONTH ALTERNATING WITH CEPHALEXIN
     Route: 048
     Dates: start: 201202
  4. CEPHALEXIN [Concomitant]
     Indication: PSEUDOMONAS BRONCHITIS
     Dosage: TAKES FOR 10 DAYS EVERY OTHER MONTH ALTERNATING WITH DOXYCYCLINE
     Route: 048
     Dates: start: 201201
  5. ADVAIR [Concomitant]
     Indication: PSEUDOMONAS BRONCHITIS
     Dates: start: 201201

REACTIONS (6)
  - Dizziness [Not Recovered/Not Resolved]
  - Nervousness [Not Recovered/Not Resolved]
  - Asthenia [Not Recovered/Not Resolved]
  - Pruritus generalised [Not Recovered/Not Resolved]
  - Tremor [Not Recovered/Not Resolved]
  - Alopecia [Not Recovered/Not Resolved]
